FAERS Safety Report 5931453-5 (Version None)
Quarter: 2008Q4

REPORT INFORMATION
  Report Type: 
  Country: None (occurrence: None)
  Receive Date: 20081027
  Receipt Date: 20081017
  Transmission Date: 20090506
  Serious: Yes (Other)
  Sender: FDA-Public Use
  Company Number: B0542734A

PATIENT
  Sex: Male

DRUGS (1)
  1. NICOTINE POLACRILEX [Suspect]
     Indication: DRUG USE FOR UNKNOWN INDICATION
     Dosage: 10LOZ PER DAY
     Route: 002

REACTIONS (3)
  - DEPENDENCE [None]
  - HEADACHE [None]
  - NICOTINE DEPENDENCE [None]
